FAERS Safety Report 6046254-X (Version None)
Quarter: 2009Q1

REPORT INFORMATION
  Report Type: 
  Country: None (occurrence: None)
  Receive Date: 20090122
  Receipt Date: 20090113
  Transmission Date: 20090719
  Serious: Yes (Other)
  Sender: FDA-Public Use
  Company Number: US-JNJFOC-20081204144

PATIENT
  Sex: Male
  Weight: 176.9 kg

DRUGS (2)
  1. REMICADE [Suspect]
     Dosage: 1300 MG TOTAL DOSE
     Route: 042
  2. REMICADE [Suspect]
     Indication: RHEUMATOID ARTHRITIS
     Route: 042

REACTIONS (2)
  - ANKLE OPERATION [None]
  - INFECTION [None]
